FAERS Safety Report 5456958-5 (Version None)
Quarter: 2007Q3

REPORT INFORMATION
  Report Type: 
  Country: None (occurrence: None)
  Receive Date: 20070918
  Receipt Date: 20061211
  Transmission Date: 20080115
  Serious: No
  Sender: FDA-Public Use
  Company Number: US-ASTRAZENECA-2006UW26949

PATIENT
  Age: 65 Year
  Sex: Male
  Weight: 90.7 kg

DRUGS (6)
  1. SEROQUEL [Suspect]
     Indication: ANXIETY
     Route: 048
     Dates: start: 20061101
  2. SEROQUEL [Suspect]
     Indication: DEPRESSION
     Route: 048
     Dates: start: 20061101
  3. SEROQUEL [Suspect]
     Indication: DIZZINESS
     Route: 048
     Dates: start: 20061101
  4. CYMBALTA [Suspect]
  5. BENICAR [Concomitant]
     Route: 048
  6. ANTIHYPERTENSIVE [Concomitant]

REACTIONS (5)
  - ANOREXIA [None]
  - BLOOD PRESSURE DECREASED [None]
  - DIZZINESS [None]
  - FATIGUE [None]
  - TINNITUS [None]
